FAERS Safety Report 5329132-0 (Version None)
Quarter: 2007Q2

REPORT INFORMATION
  Report Type: 
  Country: None (occurrence: None)
  Receive Date: 20070518
  Receipt Date: 20070507
  Transmission Date: 20071010
  Serious: Yes (Other)
  Sender: FDA-Public Use
  Company Number: US-PFIZER INC-2007008506

PATIENT
  Age: 46 Year
  Sex: Female
  Weight: 90.7 kg

DRUGS (1)
  1. CHANTIX [Suspect]
     Indication: SMOKING CESSATION THERAPY
     Route: 048
     Dates: start: 20070108, end: 20070115

REACTIONS (6)
  - ANXIETY [None]
  - HYPOAESTHESIA [None]
  - LIP DISORDER [None]
  - RASH [None]
  - SWELLING [None]
  - URTICARIA [None]
